FAERS Safety Report 11824868 (Version 10)
Quarter: 2024Q1

REPORT INFORMATION
  Report Type: Report from Study
  Country: JP (occurrence: JP)
  Receive Date: 20151210
  Receipt Date: 20240221
  Transmission Date: 20240410
  Serious: Yes (Death, Hospitalization, Other)
  Sender: FDA-Public Use
  Company Number: JP-BRISTOL-MYERS SQUIBB COMPANY-BMS-2015-080727

PATIENT
  Age: 70 Year
  Sex: Female
  Weight: 56 kg

DRUGS (5)
  1. NIVOLUMAB [Suspect]
     Active Substance: NIVOLUMAB
     Indication: Malignant melanoma
     Dosage: 2 MG/KG, UNK
     Route: 041
     Dates: start: 20141204, end: 20141204
  2. NIVOLUMAB [Suspect]
     Active Substance: NIVOLUMAB
     Dosage: 2 MG/KG, UNK
     Route: 041
     Dates: start: 20141225, end: 20141225
  3. NIVOLUMAB [Suspect]
     Active Substance: NIVOLUMAB
     Dosage: 2 MG/KG, UNK
     Route: 041
     Dates: start: 20150114, end: 20150114
  4. DECARON [DEXAMETHASONE] [Concomitant]
     Indication: Metastases to central nervous system
     Dosage: (ORAL DRUG UNSPECIFIED FORM)
     Route: 048
     Dates: start: 20150218, end: 20150224
  5. DECARON [DEXAMETHASONE] [Concomitant]
     Dosage: (ORAL DRUG UNSPECIFIED FORM)
     Route: 048
     Dates: start: 20150225, end: 20150303

REACTIONS (5)
  - Malignant melanoma [Fatal]
  - Organising pneumonia [Recovered/Resolved]
  - Pyrexia [Recovering/Resolving]
  - Hepatic function abnormal [Recovering/Resolving]
  - Off label use [Unknown]

NARRATIVE: CASE EVENT DATE: 20150204
